FAERS Safety Report 21957669 (Version 6)
Quarter: 2023Q2

REPORT INFORMATION
  Report Type: Spontaneous
  Country: NL (occurrence: NL)
  Receive Date: 20230206
  Receipt Date: 20230602
  Transmission Date: 20230721
  Serious: Yes (Hospitalization, Other)
  Sender: FDA-Public Use
  Company Number: NL-ROCHE-3254097

PATIENT
  Age: 69 Year
  Sex: Male

DRUGS (7)
  1. MYCOPHENOLATE MOFETIL [Interacting]
     Active Substance: MYCOPHENOLATE MOFETIL
     Indication: Kidney transplant rejection
     Dosage: 1500 MILLIGRAM, QD (750 MILLIGRAM, BID)
     Route: 065
  2. MYCOPHENOLATE MOFETIL [Interacting]
     Active Substance: MYCOPHENOLATE MOFETIL
     Indication: Prophylaxis against transplant rejection
  3. MYCOPHENOLATE MOFETIL [Interacting]
     Active Substance: MYCOPHENOLATE MOFETIL
     Indication: Renal transplant
  4. ACYCLOVIR [Interacting]
     Active Substance: ACYCLOVIR
     Indication: Meningoencephalitis herpetic
     Dosage: 20 MG/KILOGRAM, QD(10 MG/KG, BID AT LEAST 21 DAYS)
     Route: 065
  5. ACYCLOVIR [Interacting]
     Active Substance: ACYCLOVIR
     Dosage: 800 MILLIGRAM, QD (400 MILLIGRAM, BID)
     Route: 065
  6. ACYCLOVIR [Interacting]
     Active Substance: ACYCLOVIR
     Dosage: 500 MILLIGRAM, QD (250 MILLIGRAM, BID)
     Route: 065
  7. ACYCLOVIR [Interacting]
     Active Substance: ACYCLOVIR
     Dosage: 10 MILLIGRAM/KILOGRAM, AT LEAST 21 DAYS
     Route: 065

REACTIONS (8)
  - Myoclonus [Recovered/Resolved]
  - Neurotoxicity [Unknown]
  - Blood creatinine increased [Recovered/Resolved]
  - Confusional state [Not Recovered/Not Resolved]
  - Overdose [Unknown]
  - Drug interaction [Unknown]
  - Meningoencephalitis herpetic [Unknown]
  - Drug level increased [Unknown]

NARRATIVE: CASE EVENT DATE: 20210101
